FAERS Safety Report 8075212-9 (Version None)
Quarter: 2012Q1

REPORT INFORMATION
  Report Type: 
  Country: None (occurrence: None)
  Receive Date: 20120127
  Receipt Date: 20120123
  Transmission Date: 20120608
  Serious: No
  Sender: FDA-Public Use
  Company Number: US-PFIZER INC-2012019067

PATIENT
  Sex: Female

DRUGS (1)
  1. DETROL LA [Suspect]
     Indication: HYPERTONIC BLADDER
     Dosage: UNK
     Dates: end: 20120122

REACTIONS (4)
  - HEADACHE [None]
  - URINARY INCONTINENCE [None]
  - SINUSITIS [None]
  - DRUG INEFFECTIVE [None]
